FAERS Safety Report 7653433-4 (Version None)
Quarter: 2011Q3

REPORT INFORMATION
  Report Type: 
  Country: None (occurrence: None)
  Receive Date: 20110803
  Receipt Date: 20110728
  Transmission Date: 20111222
  Serious: No
  Sender: FDA-Public Use
  Company Number: US-PFIZER INC-2011173043

PATIENT

DRUGS (1)
  1. AZITHROMYCIN [Suspect]
     Dosage: 250 MG, UNK

REACTIONS (1)
  - DYSPHAGIA [None]
